FAERS Safety Report 6595762-1 (Version None)
Quarter: 2010Q1

REPORT INFORMATION
  Report Type: 
  Country: None (occurrence: None)
  Receive Date: 20100223
  Receipt Date: 20100105
  Transmission Date: 20100710
  Serious: Yes (Death)
  Sender: FDA-Public Use
  Company Number: US-TYCO HEALTHCARE/MALLINCKRODT-T201000449

PATIENT
  Age: 40 Year
  Sex: Male

DRUGS (6)
  1. OXYCODONE [Suspect]
     Route: 048
  2. DULOXETINE HYDROCHLORIDE [Suspect]
     Route: 048
  3. BUPROPION HCL [Suspect]
     Route: 048
  4. GABAPENTIN [Suspect]
     Route: 048
  5. ZOLPIDEM [Suspect]
     Route: 048
  6. DIPHENHYDRAMINE [Suspect]
     Route: 048

REACTIONS (1)
  - CARDIO-RESPIRATORY ARREST [None]
